FAERS Safety Report 10146537 (Version 1)
Quarter: 2014Q2

REPORT INFORMATION
  Report Type: Spontaneous
  Country: AU (occurrence: AU)
  Receive Date: 20140501
  Receipt Date: 20140501
  Transmission Date: 20141212
  Serious: Yes (Other)
  Sender: FDA-Public Use
  Company Number: AU-ASTRAZENECA-2014SE27931

PATIENT
  Age: 70 Year
  Sex: Male

DRUGS (2)
  1. ARIMIDEX [Suspect]
     Route: 048
  2. FEMARA [Suspect]
     Indication: BREAST CANCER METASTATIC
     Route: 048

REACTIONS (1)
  - Malignant neoplasm progression [Unknown]
